FAERS Safety Report 19283807 (Version 1)
Quarter: 2021Q2

REPORT INFORMATION
  Report Type: Spontaneous
  Country: IR (occurrence: IR)
  Receive Date: 20210521
  Receipt Date: 20210521
  Transmission Date: 20210717
  Serious: Yes (Death)
  Sender: FDA-Public Use
  Company Number: IR-009507513-2105IRN004525

PATIENT
  Age: 66 Year
  Sex: Female

DRUGS (13)
  1. CASPOFUNGIN ACETATE. [Suspect]
     Active Substance: CASPOFUNGIN ACETATE
     Indication: COVID-19 PNEUMONIA
  2. VORICONAZOL [Suspect]
     Active Substance: VORICONAZOLE
     Indication: COVID-19 PNEUMONIA
     Dosage: 4 MILLIGRAM/KILOGRAM, EVERY 12 HOURS
     Dates: start: 2020
  3. INTERFERON BETA?1A [Concomitant]
     Active Substance: INTERFERON BETA-1A
     Indication: COVID-19 PNEUMONIA
     Dosage: 12 MILLION UNITS ONCE IN ALTERNATE DAY FOR FIVE DOSES
     Route: 058
     Dates: start: 202010, end: 2020
  4. INTERFERON BETA?1A [Concomitant]
     Active Substance: INTERFERON BETA-1A
     Indication: ASPERGILLUS INFECTION
  5. MEROPENEM. [Concomitant]
     Active Substance: MEROPENEM
     Indication: COVID-19 PNEUMONIA
     Dosage: 1 GRAM, EVERY 8 HOURS
     Dates: start: 2020
  6. VORICONAZOL [Suspect]
     Active Substance: VORICONAZOLE
     Indication: ASPERGILLUS INFECTION
     Dosage: 6 MILLIGRAM/KILOGRAM, EVERY 12 HOURS
     Dates: start: 2020, end: 2020
  7. DEXAMETHASONE. [Concomitant]
     Active Substance: DEXAMETHASONE
     Indication: ASPERGILLUS INFECTION
  8. VANCOMYCIN [Concomitant]
     Active Substance: VANCOMYCIN
     Indication: COVID-19 PNEUMONIA
     Dosage: 1 GRAM, EVERY 12 HRS
     Dates: start: 2020
  9. CASPOFUNGIN ACETATE. [Suspect]
     Active Substance: CASPOFUNGIN ACETATE
     Indication: ASPERGILLUS INFECTION
  10. DEXAMETHASONE. [Concomitant]
     Active Substance: DEXAMETHASONE
     Indication: COVID-19 PNEUMONIA
     Dosage: 8 MILLIGRAM, DAILY
     Route: 042
     Dates: start: 202010, end: 2020
  11. MEROPENEM. [Concomitant]
     Active Substance: MEROPENEM
     Indication: ASPERGILLUS INFECTION
  12. CASPOFUNGIN ACETATE. [Suspect]
     Active Substance: CASPOFUNGIN ACETATE
     Indication: BRONCHOPULMONARY ASPERGILLOSIS
     Dosage: UNK
     Dates: start: 2020
  13. VANCOMYCIN [Concomitant]
     Active Substance: VANCOMYCIN
     Indication: ASPERGILLUS INFECTION

REACTIONS (1)
  - Drug ineffective [Fatal]

NARRATIVE: CASE EVENT DATE: 2020
